FAERS Safety Report 4430689-2 (Version None)
Quarter: 2004Q3

REPORT INFORMATION
  Report Type: 
  Country: None (occurrence: None)
  Receive Date: 20040721
  Receipt Date: 20040312
  Transmission Date: 20050211
  Serious: Yes (Other)
  Sender: FDA-Public Use
  Company Number: WAES 0403USA01297

PATIENT
  Age: 70 Year
  Sex: Female

DRUGS (4)
  1. VIOXX [Suspect]
     Indication: ARTHRALGIA
     Dosage: 25 MG/DAILY/PO
     Route: 048
     Dates: start: 20040304, end: 20040308
  2. VIOXX [Suspect]
     Indication: OSTEOARTHRITIS
     Dosage: 25 MG/DAILY/PO
     Route: 048
     Dates: start: 20040304, end: 20040308
  3. SYNTHROID [Concomitant]
  4. ZESTORETIC [Concomitant]

REACTIONS (1)
  - HYPERSENSITIVITY [None]
